FAERS Safety Report 4650869-0 (Version None)
Quarter: 2005Q2

REPORT INFORMATION
  Report Type: 
  Country: None (occurrence: None)
  Receive Date: 20050429
  Receipt Date: 20050418
  Transmission Date: 20051028
  Serious: Yes (Other)
  Sender: FDA-Public Use
  Company Number: 2005-0007904

PATIENT
  Age: 14 Year
  Sex: Male

DRUGS (8)
  1. EMTRICITABINE (EMTRICITABINE) [Suspect]
     Indication: HIV INFECTION
     Dosage: 200 MG, 1 IN 1 D, ORAL
     Route: 048
     Dates: start: 20040930, end: 20041124
  2. EMTRICITABINE (EMTRICITABINE) [Suspect]
     Indication: HIV INFECTION
     Dosage: 200 MG, 1 IN 1 D, ORAL
     Route: 048
     Dates: start: 20041220, end: 20050126
  3. ATAZANAVIR (ATAZANAVIR) [Suspect]
     Indication: HIV INFECTION
     Dosage: 500 MG, 1 IN 1 D, ORAL
     Route: 048
     Dates: start: 20040930, end: 20041124
  4. ATAZANAVIR (ATAZANAVIR) [Suspect]
     Indication: HIV INFECTION
     Dosage: 500 MG, 1 IN 1 D, ORAL
     Route: 048
     Dates: start: 20041220, end: 20050126
  5. RITONAVIR (RITONAVIR) [Suspect]
     Indication: HIV INFECTION
     Dosage: 100 MG, 1 IN 1 D, ORAL
     Route: 048
     Dates: start: 20040930, end: 20041124
  6. RITONAVIR (RITONAVIR) [Suspect]
     Indication: HIV INFECTION
     Dosage: 100 MG, 1 IN 1 D, ORAL
     Route: 048
     Dates: start: 20041220, end: 20050126
  7. DIDANOSINE [Suspect]
     Indication: HIV INFECTION
     Dosage: SEE IMAGE
     Route: 048
     Dates: start: 19930726, end: 20041124
  8. DIDANOSINE [Suspect]
     Indication: HIV INFECTION
     Dosage: SEE IMAGE
     Route: 048
     Dates: start: 20041220, end: 20050126

REACTIONS (15)
  - ALANINE AMINOTRANSFERASE INCREASED [None]
  - ASPARTATE AMINOTRANSFERASE INCREASED [None]
  - BLOOD ALKALINE PHOSPHATASE INCREASED [None]
  - BLOOD AMYLASE INCREASED [None]
  - BLOOD BILIRUBIN INCREASED [None]
  - BLOOD BILIRUBIN UNCONJUGATED INCREASED [None]
  - FATIGUE [None]
  - GAMMA-GLUTAMYLTRANSFERASE INCREASED [None]
  - GLUCOSE URINE PRESENT [None]
  - HEADACHE [None]
  - HEPATIC ENZYME INCREASED [None]
  - HYPERGLYCAEMIA [None]
  - LIPASE INCREASED [None]
  - OCULAR ICTERUS [None]
  - THIRST [None]
